FAERS Safety Report 10275683 (Version 3)
Quarter: 2014Q3

REPORT INFORMATION
  Report Type: Report from Study
  Country: US (occurrence: US)
  Receive Date: 20140703
  Receipt Date: 20140721
  Transmission Date: 20150326
  Serious: Yes (Other)
  Sender: FDA-Public Use
  Company Number: US-JNJFOC-20140511361

PATIENT
  Sex: Male

DRUGS (1)
  1. REMICADE [Suspect]
     Active Substance: INFLIXIMAB
     Indication: PRODUCT USED FOR UNKNOWN INDICATION
     Dosage: 1 HOUR DRIP
     Route: 042
     Dates: start: 201307

REACTIONS (5)
  - Swollen tongue [Recovered/Resolved]
  - Adverse drug reaction [Recovered/Resolved]
  - Pharyngeal oedema [Recovered/Resolved]
  - Joint swelling [Recovered/Resolved]
  - Lung infiltration [Recovered/Resolved]

NARRATIVE: CASE EVENT DATE: 2013
